FAERS Safety Report 16286771 (Version 1)
Quarter: 2019Q2

REPORT INFORMATION
  Report Type: Report from Study
  Country: US (occurrence: US)
  Receive Date: 20190508
  Receipt Date: 20190508
  Transmission Date: 20190711
  Serious: Yes (Hospitalization, Other)
  Sender: FDA-Public Use
  Company Number: US-CELGENEUS-USA-20190411466

PATIENT
  Age: 54 Year
  Sex: Female
  Weight: 94.6 kg

DRUGS (2)
  1. REVLIMID [Suspect]
     Active Substance: LENALIDOMIDE
     Indication: B-CELL LYMPHOMA
     Dosage: 10 MILLIGRAM
     Route: 048
     Dates: start: 20170214, end: 20180729
  2. OBINUTUZUMAB. [Suspect]
     Active Substance: OBINUTUZUMAB
     Indication: B-CELL LYMPHOMA
     Dosage: 1000 MILLIGRAM
     Route: 041
     Dates: start: 20170214, end: 20190304

REACTIONS (4)
  - Small intestinal perforation [Unknown]
  - Road traffic accident [Unknown]
  - Mesenteric haematoma [Unknown]
  - Rib fracture [Unknown]

NARRATIVE: CASE EVENT DATE: 20190420
